FAERS Safety Report 8462881 (Version 4)
Quarter: 2013Q1

REPORT INFORMATION
  Report Type: Spontaneous
  Country: US (occurrence: US)
  Receive Date: 20120316
  Receipt Date: 20130312
  Transmission Date: 20140127
  Serious: Yes (Hospitalization, Other)
  Sender: FDA-Public Use
  Company Number: US-ELI_LILLY_AND_COMPANY-US201108004574

PATIENT
  Age: 83 Year
  Sex: Female
  Weight: 77.1 kg

DRUGS (22)
  1. FORTEO [Suspect]
     Indication: OSTEOPOROSIS
     Dosage: 20 UG, QD
  2. FORTEO [Suspect]
     Dosage: 20 UG, QD
  3. FORTEO [Suspect]
     Dosage: 20 UG, QD
     Route: 065
  4. FORTEO [Suspect]
     Dosage: 20 UG, QD
  5. SPIRONOLACTONE [Concomitant]
  6. PRAVASTAN [Concomitant]
  7. SPIRIVA [Concomitant]
  8. MIRALAX [Concomitant]
  9. PRED FORT [Concomitant]
     Indication: CORNEAL TRANSPLANT
  10. LEVOTHYROXINE [Concomitant]
  11. TYLENOL /00020001/ [Concomitant]
  12. BENADRYL [Concomitant]
  13. VITAMIN C [Concomitant]
  14. MULTIVITAMIN [Concomitant]
  15. CALCIUM [Concomitant]
  16. CLOPIDOGREL [Concomitant]
  17. COUMADIN [Concomitant]
  18. TORSEMIDE [Concomitant]
  19. AMIODARONE [Concomitant]
  20. ISOSORBIDE [Concomitant]
  21. PRAVASTATIN [Concomitant]
  22. PLAVIX [Concomitant]

REACTIONS (19)
  - Fall [Unknown]
  - Haemorrhage [Recovering/Resolving]
  - Muscle haemorrhage [Recovering/Resolving]
  - Dyspnoea [Recovering/Resolving]
  - Muscle strain [Unknown]
  - Pneumonia [Recovering/Resolving]
  - Fatigue [Unknown]
  - Adverse drug reaction [Unknown]
  - Hearing impaired [Not Recovered/Not Resolved]
  - Joint injury [Unknown]
  - Haemorrhage [Unknown]
  - Back pain [Unknown]
  - Pain in extremity [Recovering/Resolving]
  - Fall [Unknown]
  - Myalgia [Unknown]
  - Balance disorder [Unknown]
  - Scoliosis [Unknown]
  - Mobility decreased [Recovering/Resolving]
  - Feeling abnormal [Recovering/Resolving]
